FAERS Safety Report 7987895-X (Version None)
Quarter: 2011Q4

REPORT INFORMATION
  Report Type: 
  Country: None (occurrence: None)
  Receive Date: 20111216
  Receipt Date: 20111207
  Transmission Date: 20120403
  Serious: Yes (Other)
  Sender: FDA-Public Use
  Company Number: US-JNJFOC-20111203326

PATIENT
  Sex: Female
  Weight: 69.4 kg

DRUGS (2)
  1. REMICADE [Suspect]
     Indication: CROHN'S DISEASE
     Route: 042
  2. REMICADE [Suspect]
     Route: 042

REACTIONS (7)
  - FATIGUE [None]
  - NAUSEA [None]
  - PRURITUS [None]
  - FISTULA [None]
  - DIARRHOEA [None]
  - ARTHRALGIA [None]
  - DRUG EFFECT DECREASED [None]
